FAERS Safety Report 9639344 (Version 3)
Quarter: 2013Q4

REPORT INFORMATION
  Report Type: Spontaneous
  Country: None (occurrence: None)
  Receive Date: 20131021
  Receipt Date: 20131024
  Transmission Date: 20140711
  Serious: Yes (Death, Hospitalization, Other)
  Sender: FDA-Public Use
  Company Number: ADR-2013-01871

PATIENT
  Sex: Male

DRUGS (1)
  1. GABALON INTRATHECAL [Suspect]
     Indication: AMYOTROPHIC LATERAL SCLEROSIS

REACTIONS (7)
  - Asphyxia [None]
  - Pneumonia aspiration [None]
  - Muscular weakness [None]
  - Cardiac arrest [None]
  - PO2 decreased [None]
  - Amyotrophic lateral sclerosis [None]
  - Disease progression [None]
